FAERS Safety Report 8098774-4 (Version None)
Quarter: 2012Q1

REPORT INFORMATION
  Report Type: 
  Country: None (occurrence: None)
  Receive Date: 20120131
  Receipt Date: 20120124
  Transmission Date: 20120608
  Serious: Yes (Other)
  Sender: FDA-Public Use
  Company Number: US-BAYER-2012-007985

PATIENT
  Age: 46 Year
  Sex: Female
  Weight: 83.9 kg

DRUGS (1)
  1. ALEVE (CAPLET) [Suspect]
     Dosage: 1 DF, TID
     Route: 048

REACTIONS (10)
  - RESTLESSNESS [None]
  - CARDIAC DISORDER [None]
  - PALPITATIONS [None]
  - ASTHENIA [None]
  - ANGINA PECTORIS [None]
  - WEIGHT INCREASED [None]
  - MYOCARDIAL INFARCTION [None]
  - HYPERHIDROSIS [None]
  - ANEURYSM [None]
  - RETCHING [None]
